FAERS Safety Report 13762917 (Version 2)
Quarter: 2017Q3

REPORT INFORMATION
  Report Type: Spontaneous
  Country: GB (occurrence: GB)
  Receive Date: 20170718
  Receipt Date: 20170928
  Transmission Date: 20171127
  Serious: Yes (Life-Threatening, Hospitalization, Other)
  Sender: FDA-Public Use
  Company Number: GB-FERRINGPH-2017FE03291

PATIENT

DRUGS (2)
  1. EVOREL [Concomitant]
     Indication: PRIMARY HYPOGONADISM
     Dosage: 6.25 ?G, DAILY
     Route: 062
     Dates: start: 20170208
  2. ZOMACTON [Suspect]
     Active Substance: SOMATROPIN
     Indication: TURNER^S SYNDROME
     Dosage: 1.7 MG, DAILY
     Route: 058
     Dates: start: 20160217, end: 20170609

REACTIONS (4)
  - Alveolar rhabdomyosarcoma [Unknown]
  - Urinary retention [Unknown]
  - Pain in extremity [Unknown]
  - Gait inability [Unknown]

NARRATIVE: CASE EVENT DATE: 20170602
